FAERS Safety Report 7471645-X (Version None)
Quarter: 2011Q2

REPORT INFORMATION
  Report Type: 
  Country: None (occurrence: None)
  Receive Date: 20110502
  Receipt Date: 20110425
  Transmission Date: 20111010
  Serious: Yes (Disabling, Other)
  Sender: FDA-Public Use
  Company Number: ACO_21466_2011

PATIENT
  Age: 62 Year
  Sex: Male

DRUGS (9)
  1. AMPYRA [Suspect]
     Indication: GAIT DISTURBANCE
     Dosage: 10 MG, BID, ORAL
     Route: 048
     Dates: start: 20100101, end: 20101201
  2. RAPAFLO (SILODOSIN) [Concomitant]
  3. ATACAND A (CANDESARTAN CILEXETIL) [Concomitant]
  4. AVONEX [Concomitant]
  5. INDAPAMIDE [Concomitant]
  6. LESCOL [Concomitant]
  7. TAMSULOSIN HYDROCHLORIDE [Concomitant]
  8. ROPINIROLE HYDROCHLORIDE [Concomitant]
  9. LOVAZA [Concomitant]

REACTIONS (1)
  - ABASIA [None]
